FAERS Safety Report 5672742-1 (Version None)
Quarter: 2008Q1

REPORT INFORMATION
  Report Type: 
  Country: None (occurrence: None)
  Receive Date: 20080306
  Receipt Date: 20080221
  Transmission Date: 20080703
  Serious: Yes (Other)
  Sender: FDA-Public Use
  Company Number: 050901-0000722

PATIENT
  Age: 38 Year
  Sex: Female
  Weight: 90.7194 kg

DRUGS (6)
  1. PANHEMATIN [Suspect]
     Indication: PORPHYRIA ACUTE
     Dosage: 301 MG; X1; IV
     Route: 042
     Dates: start: 19971101
  2. FOSAMAX [Concomitant]
  3. LUPRON [Concomitant]
  4. MULTI-VITAMIN [Concomitant]
  5. CALCIUM PLUS VITAMIN D [Concomitant]
  6. MAGNESIUM [Concomitant]

REACTIONS (2)
  - HEADACHE [None]
  - SERUM FERRITIN INCREASED [None]
